FAERS Safety Report 14422928 (Version 1)
Quarter: 2018Q1

REPORT INFORMATION
  Report Type: Spontaneous
  Country: GB (occurrence: GB)
  Receive Date: 20180123
  Receipt Date: 20180123
  Transmission Date: 20180509
  Serious: Yes (Hospitalization)
  Sender: FDA-Public Use
  Company Number: GB-KRKA, D.D., NOVO MESTO-2040598

PATIENT
  Age: 28 Year
  Sex: Female
  Weight: 68 kg

DRUGS (5)
  1. LANSOPRAZOLE. [Suspect]
     Active Substance: LANSOPRAZOLE
     Indication: DYSPEPSIA
     Route: 048
  2. SERTRALINE [Suspect]
     Active Substance: SERTRALINE HYDROCHLORIDE
     Route: 048
  3. LACTULOSE. [Concomitant]
     Active Substance: LACTULOSE
  4. CYCLIZINE [Concomitant]
     Active Substance: CYCLIZINE
  5. THIAMINE. [Concomitant]
     Active Substance: THIAMINE

REACTIONS (2)
  - Fall [Recovering/Resolving]
  - Hyponatraemia [Recovering/Resolving]
